FAERS Safety Report 7968266-9 (Version None)
Quarter: 2011Q4

REPORT INFORMATION
  Report Type: 
  Country: None (occurrence: None)
  Receive Date: 20111209
  Receipt Date: 20111206
  Transmission Date: 20120403
  Serious: Yes (Death)
  Sender: FDA-Public Use
  Company Number: PHHY2011BE106673

PATIENT
  Sex: Male

DRUGS (2)
  1. SANDOSTATIN LAR [Suspect]
     Dates: start: 20111019
  2. SANDOSTATIN LAR [Suspect]
     Indication: VASCULAR OCCLUSION
     Dates: start: 20110921

REACTIONS (1)
  - DEATH [None]
